FAERS Safety Report 10881912 (Version 4)
Quarter: 2015Q2

REPORT INFORMATION
  Report Type: Report from Study
  Country: AU (occurrence: AU)
  Receive Date: 20150303
  Receipt Date: 20150504
  Transmission Date: 20150821
  Serious: Yes (Other)
  Sender: FDA-Public Use
  Company Number: PHHY2010AU11049

PATIENT
  Age: 47 Year
  Sex: Male

DRUGS (3)
  1. CLOZARIL [Suspect]
     Active Substance: CLOZAPINE
     Indication: SCHIZOPHRENIA
     Dosage: 300 OT, UNK
     Route: 048
     Dates: start: 20091014
  2. CLOZARIL [Suspect]
     Active Substance: CLOZAPINE
     Dosage: 300 (UNIT UNSPECIFIED)
     Route: 048
     Dates: start: 20091014
  3. CLOZARIL [Suspect]
     Active Substance: CLOZAPINE
     Dosage: QD
     Route: 048

REACTIONS (2)
  - White blood cell count increased [Not Recovered/Not Resolved]
  - Neutrophil count increased [Not Recovered/Not Resolved]

NARRATIVE: CASE EVENT DATE: 20100209
